FAERS Safety Report 6877949-3 (Version None)
Quarter: 2010Q3

REPORT INFORMATION
  Report Type: 
  Country: None (occurrence: None)
  Receive Date: 20100727
  Receipt Date: 20100722
  Transmission Date: 20110219
  Serious: Yes (Disabling)
  Sender: FDA-Public Use
  Company Number: PHHY2010US32011

PATIENT
  Sex: Female
  Weight: 46.712 kg

DRUGS (12)
  1. TOBI [Suspect]
     Indication: BACTERIAL DISEASE CARRIER
     Dosage: 300 MG, BID
     Dates: start: 20100101, end: 20100505
  2. AZITHROMYCIN [Suspect]
     Dosage: 250 MG, BID, THREE DAYS WEEKLY
     Route: 048
  3. FLOVENT [Concomitant]
     Dosage: 220 MG, 2 PUFFS, BID
  4. SPIRIVA [Concomitant]
     Dosage: 18 UG, UNK
  5. CETHROMYCIN [Concomitant]
  6. PANTOPRAZOLE [Concomitant]
  7. LIPITOR [Concomitant]
     Dosage: 10 MG, QD
  8. MELOXICAM [Concomitant]
     Dosage: 15 MG, QD
  9. FOLIC ACID [Concomitant]
     Dosage: 1 MG, BID
  10. MULTI-VIT [Concomitant]
  11. RESTASIS [Concomitant]
     Dosage: 1 DROP EACH EYE
  12. GABAPENTIN [Concomitant]
     Dosage: 300 MG, UNK

REACTIONS (3)
  - DYSPHONIA [None]
  - OROPHARYNGEAL PAIN [None]
  - RALES [None]
